FAERS Safety Report 17040744 (Version 1)
Quarter: 2019Q4

REPORT INFORMATION
  Report Type: Spontaneous
  Country: US (occurrence: US)
  Receive Date: 20191117
  Receipt Date: 20191117
  Transmission Date: 20200122
  Serious: Yes (Hospitalization)
  Sender: FDA-Public Use
  Company Number: US-009507513-1911USA005611

PATIENT
  Age: 49 Year
  Sex: Female
  Weight: 64.4 kg

DRUGS (2)
  1. CUBICIN [Suspect]
     Active Substance: DAPTOMYCIN
     Indication: ENDOCARDITIS STAPHYLOCOCCAL
     Dosage: 7.8 MG/KG, ONCE PER DAY(QD)
     Route: 042
     Dates: start: 20090520, end: 20090521
  2. VANCOMYCIN [Suspect]
     Active Substance: VANCOMYCIN
     Indication: ENDOCARDITIS STAPHYLOCOCCAL
     Dosage: 1 G, TWICE A DAY(BID)
     Route: 042
     Dates: start: 20090427, end: 20090517

REACTIONS (12)
  - Blood alkaline phosphatase increased [Unknown]
  - Scab [Unknown]
  - Pyrexia [Unknown]
  - Concomitant disease progression [Unknown]
  - Nausea [Unknown]
  - Headache [Unknown]
  - Rash pruritic [Unknown]
  - Glossodynia [Unknown]
  - Rash [Unknown]
  - Vomiting [Unknown]
  - Drug reaction with eosinophilia and systemic symptoms [Unknown]
  - Swelling face [Unknown]
